FAERS Safety Report 17955282 (Version 4)
Quarter: 2023Q2

REPORT INFORMATION
  Report Type: Spontaneous
  Country: US (occurrence: US)
  Receive Date: 20200629
  Receipt Date: 20230628
  Transmission Date: 20230722
  Serious: Yes (Other)
  Sender: FDA-Public Use
  Company Number: US-GILEAD-2020-0476513

PATIENT
  Age: 37 Year
  Sex: Male
  Weight: 102.04 kg

DRUGS (48)
  1. VIREAD [Suspect]
     Active Substance: TENOFOVIR DISOPROXIL FUMARATE
     Indication: HIV infection
     Dosage: UNK
     Route: 048
     Dates: start: 200110, end: 201603
  2. VIREAD [Suspect]
     Active Substance: TENOFOVIR DISOPROXIL FUMARATE
     Dosage: UNK
     Route: 048
     Dates: start: 200307, end: 2007
  3. VIREAD [Suspect]
     Active Substance: TENOFOVIR DISOPROXIL FUMARATE
     Dosage: UNK
     Route: 048
     Dates: start: 2001
  4. VIREAD [Suspect]
     Active Substance: TENOFOVIR DISOPROXIL FUMARATE
     Dosage: UNK
     Route: 048
     Dates: start: 200304, end: 200603
  5. TYBOST [Concomitant]
     Active Substance: COBICISTAT
  6. EPZICOM [Concomitant]
     Active Substance: ABACAVIR SULFATE\LAMIVUDINE
  7. NORVIR [Concomitant]
     Active Substance: RITONAVIR
  8. PREZCOBIX [Concomitant]
     Active Substance: COBICISTAT\DARUNAVIR ETHANOLATE
  9. REYATAZ [Concomitant]
     Active Substance: ATAZANAVIR SULFATE
  10. TIVICAY [Concomitant]
     Active Substance: DOLUTEGRAVIR SODIUM
  11. ZIAGEN [Concomitant]
     Active Substance: ABACAVIR SULFATE
  12. ALPRAZOLAM [Concomitant]
     Active Substance: ALPRAZOLAM
  13. ANDROGEL [Concomitant]
     Active Substance: TESTOSTERONE
  14. ARIPIPRAZOLE [Concomitant]
     Active Substance: ARIPIPRAZOLE
  15. BENZONATATE [Concomitant]
     Active Substance: BENZONATATE
  16. BUPROPION [Concomitant]
     Active Substance: BUPROPION
  17. BYDUREON [Concomitant]
     Active Substance: EXENATIDE
  18. CARTIA XT [Concomitant]
     Active Substance: DILTIAZEM HYDROCHLORIDE
  19. CHANTIX [Concomitant]
     Active Substance: VARENICLINE TARTRATE
  20. CHLORTHALIDONE [Concomitant]
     Active Substance: CHLORTHALIDONE
  21. COLESEVELAM [Concomitant]
     Active Substance: COLESEVELAM
  22. CREON [Concomitant]
     Active Substance: PANCRELIPASE AMYLASE\PANCRELIPASE LIPASE\PANCRELIPASE PROTEASE
  23. CYCLOBENZAPRINE [Concomitant]
     Active Substance: CYCLOBENZAPRINE
  24. DICLOFENAC [Concomitant]
     Active Substance: DICLOFENAC
  25. CYMBALTA [Concomitant]
     Active Substance: DULOXETINE HYDROCHLORIDE
  26. EGRIFTA [Concomitant]
     Active Substance: TESAMORELIN ACETATE
  27. ENDOCET [Concomitant]
     Active Substance: ACETAMINOPHEN\OXYCODONE HYDROCHLORIDE
  28. FLUTICASONE [Concomitant]
     Active Substance: FLUTICASONE
  29. GABAPENTIN [Concomitant]
     Active Substance: GABAPENTIN
  30. JARDIANCE [Concomitant]
     Active Substance: EMPAGLIFLOZIN
  31. LEVETIRACETAM [Concomitant]
     Active Substance: LEVETIRACETAM
  32. LISINOPRIL [Concomitant]
     Active Substance: LISINOPRIL
  33. LYRICA [Concomitant]
     Active Substance: PREGABALIN
  34. MYTESI [Concomitant]
     Active Substance: CROFELEMER
  35. NICOTINE [Concomitant]
     Active Substance: NICOTINE
  36. OXYCODONE AND ACETAMINOPHEN [Concomitant]
     Active Substance: ACETAMINOPHEN\OXYCODONE HYDROCHLORIDE
  37. QUETIAPINE [Concomitant]
     Active Substance: QUETIAPINE
  38. RISPERIDONE [Concomitant]
     Active Substance: RISPERIDONE
  39. ROSUVASTATIN [Concomitant]
     Active Substance: ROSUVASTATIN
  40. TESTOSTERONE [Concomitant]
     Active Substance: TESTOSTERONE
  41. VICTOZA [Concomitant]
     Active Substance: LIRAGLUTIDE
  42. VITAMIN D2 [Concomitant]
     Active Substance: ERGOCALCIFEROL
  43. VITAMIN D3 [Concomitant]
     Active Substance: CHOLECALCIFEROL
  44. ZOLPIDEM [Concomitant]
     Active Substance: ZOLPIDEM TARTRATE
  45. KALETRA [Concomitant]
     Active Substance: LOPINAVIR\RITONAVIR
  46. VIDEX [Concomitant]
     Active Substance: DIDANOSINE
  47. CABENUVA [Concomitant]
     Active Substance: CABOTEGRAVIR\RILPIVIRINE
  48. FORTEO [Concomitant]
     Active Substance: TERIPARATIDE

REACTIONS (19)
  - Chronic kidney disease [Not Recovered/Not Resolved]
  - Multiple fractures [Unknown]
  - Osteoporotic fracture [Unknown]
  - Pathological fracture [Unknown]
  - Ankle fracture [Not Recovered/Not Resolved]
  - Osteomalacia [Unknown]
  - Osteoporosis [Not Recovered/Not Resolved]
  - Osteonecrosis [Unknown]
  - Renal failure [Not Recovered/Not Resolved]
  - Bone loss [Unknown]
  - Bone density decreased [Unknown]
  - Osteopenia [Not Recovered/Not Resolved]
  - Fear-related avoidance of activities [Not Recovered/Not Resolved]
  - Anxiety [Not Recovered/Not Resolved]
  - Depression [Unknown]
  - Pain [Not Recovered/Not Resolved]
  - Emotional distress [Not Recovered/Not Resolved]
  - Bone demineralisation [Unknown]
  - Anhedonia [Not Recovered/Not Resolved]

NARRATIVE: CASE EVENT DATE: 20030601
